FAERS Safety Report 10901445 (Version 2)
Quarter: 2015Q1

REPORT INFORMATION
  Report Type: Spontaneous
  Country: US (occurrence: US)
  Receive Date: 20150310
  Receipt Date: 20150311
  Transmission Date: 20150721
  Serious: Yes (Death, Hospitalization, Other)
  Sender: FDA-Public Use
  Company Number: US-ABBVIE-15K-163-1357285-00

PATIENT
  Age: 71 Year
  Sex: Male
  Weight: 93.52 kg

DRUGS (2)
  1. 6-MP [Concomitant]
     Active Substance: MERCAPTOPURINE
     Indication: CROHN^S DISEASE
  2. HUMIRA [Suspect]
     Active Substance: ADALIMUMAB
     Indication: CROHN^S DISEASE
     Route: 058
     Dates: start: 20150211, end: 20150211

REACTIONS (12)
  - Fatigue [Not Recovered/Not Resolved]
  - Bilirubin conjugated increased [Fatal]
  - Blood lactic acid increased [Fatal]
  - Hypotension [Not Recovered/Not Resolved]
  - Abdominal pain [Not Recovered/Not Resolved]
  - Prothrombin time prolonged [Not Recovered/Not Resolved]
  - Pancytopenia [Fatal]
  - Aplastic anaemia [Not Recovered/Not Resolved]
  - Haematuria [Unknown]
  - Urosepsis [Fatal]
  - Blood bilirubin increased [Fatal]
  - Rectal haemorrhage [Not Recovered/Not Resolved]

NARRATIVE: CASE EVENT DATE: 201502
